FAERS Safety Report 6271045-4 (Version None)
Quarter: 2009Q3

REPORT INFORMATION
  Report Type: 
  Country: None (occurrence: None)
  Receive Date: 20090716
  Receipt Date: 20090703
  Transmission Date: 20100115
  Serious: Yes (Hospitalization, Other)
  Sender: FDA-Public Use
  Company Number: DE-ABBOTT-09P-062-0583162-00

PATIENT
  Sex: Male
  Weight: 55 kg

DRUGS (1)
  1. KLACID [Suspect]
     Indication: EMPYEMA
     Route: 042

REACTIONS (5)
  - CARDIAC FAILURE [None]
  - DYSPNOEA [None]
  - EJECTION FRACTION ABNORMAL [None]
  - EMPYEMA [None]
  - WEIGHT INCREASED [None]
